FAERS Safety Report 6337063-2 (Version None)
Quarter: 2009Q3

REPORT INFORMATION
  Report Type: 
  Country: None (occurrence: None)
  Receive Date: 20090901
  Receipt Date: 20090820
  Transmission Date: 20100115
  Serious: Yes (Death)
  Sender: FDA-Public Use
  Company Number: US-BAXTER-2009BH012699

PATIENT
  Age: 63 Year
  Sex: Male

DRUGS (1)
  1. DIANEAL [Suspect]
     Indication: CARDIAC FAILURE CONGESTIVE
     Route: 033
     Dates: start: 20080101, end: 20090811

REACTIONS (1)
  - CARDIAC FAILURE CONGESTIVE [None]
